FAERS Safety Report 25135691 (Version 1)
Quarter: 2025Q1

REPORT INFORMATION
  Report Type: Spontaneous
  Country: CA (occurrence: CA)
  Receive Date: 20250328
  Receipt Date: 20250328
  Transmission Date: 20250409
  Serious: Yes (Other)
  Sender: PFIZER
  Company Number: CA-PFIZER INC-PV202500016624

PATIENT
  Age: 74 Year
  Sex: Male
  Weight: 104.1 kg

DRUGS (3)
  1. RUXIENCE [Suspect]
     Active Substance: RITUXIMAB-PVVR
     Indication: Warm autoimmune haemolytic anaemia
     Dosage: 851 MG (375 MG/M2) WEEKLY X 4 DOSES
     Route: 042
     Dates: start: 20250314
  2. RUXIENCE [Suspect]
     Active Substance: RITUXIMAB-PVVR
     Dosage: 851 MG (375 MG/M2) WEEKLY X 4 DOSES
     Route: 042
     Dates: start: 20250314
  3. RUXIENCE [Suspect]
     Active Substance: RITUXIMAB-PVVR
     Dosage: 851 MG INFUSED IV Q WEEKLY
     Route: 042
     Dates: start: 20250321

REACTIONS (4)
  - Weight decreased [Unknown]
  - Heart rate irregular [Unknown]
  - Blood pressure fluctuation [Unknown]
  - Off label use [Unknown]

NARRATIVE: CASE EVENT DATE: 20250314
